FAERS Safety Report 5927923-6 (Version None)
Quarter: 2008Q4

REPORT INFORMATION
  Report Type: 
  Country: None (occurrence: None)
  Receive Date: 20081022
  Receipt Date: 20081022
  Transmission Date: 20090506
  Serious: Yes (Other)
  Sender: FDA-Public Use
  Company Number: None

PATIENT
  Age: 8 Year
  Sex: Male
  Weight: 26.7622 kg

DRUGS (1)
  1. SINGULAIR [Suspect]
     Indication: ASTHMA
     Dosage: 5 MG ONCE/DAY PO
     Route: 048
     Dates: start: 20030528, end: 20080911

REACTIONS (2)
  - ABNORMAL BEHAVIOUR [None]
  - AFFECTIVE DISORDER [None]
